FAERS Safety Report 6495298-2 (Version None)
Quarter: 2009Q4

REPORT INFORMATION
  Report Type: 
  Country: None (occurrence: None)
  Receive Date: 20091214
  Receipt Date: 20090605
  Transmission Date: 20100525
  Serious: No
  Sender: FDA-Public Use
  Company Number: US-BRISTOL-MYERS SQUIBB COMPANY-14636898

PATIENT
  Age: 16 Year
  Sex: Female
  Weight: 55 kg

DRUGS (7)
  1. ABILIFY [Suspect]
     Indication: DEPRESSION
     Dosage: INI:2MG,13MAY09,LOT#:8F35164A,EXP:JUN2010;INCR:1/2TAB(5MG)19-21MAY09;REDU:1/4TAB(2.5MG):22MAY09.
     Route: 048
     Dates: start: 20090513, end: 20090527
  2. ABILIFY [Suspect]
     Indication: ANXIETY
     Dosage: INI:2MG,13MAY09,LOT#:8F35164A,EXP:JUN2010;INCR:1/2TAB(5MG)19-21MAY09;REDU:1/4TAB(2.5MG):22MAY09.
     Route: 048
     Dates: start: 20090513, end: 20090527
  3. ZOLOFT [Concomitant]
     Indication: ANXIETY
  4. ZOLOFT [Concomitant]
     Indication: DEPRESSION
  5. YAZ [Concomitant]
  6. VITAMINS [Concomitant]
     Dosage: CENTRUM CHEWABLE VITAMINS
  7. VIACTIV [Concomitant]

REACTIONS (8)
  - AGGRESSION [None]
  - AMNESIA [None]
  - COGNITIVE DISORDER [None]
  - DISTURBANCE IN ATTENTION [None]
  - FATIGUE [None]
  - METRORRHAGIA [None]
  - MOTOR DYSFUNCTION [None]
  - SOMNOLENCE [None]
